FAERS Safety Report 21509122 (Version 1)
Quarter: 2022Q4

REPORT INFORMATION
  Report Type: Spontaneous
  Country: US (occurrence: None)
  Receive Date: 20221026
  Receipt Date: 20221026
  Transmission Date: 20230113
  Serious: Yes (Life-Threatening, Disabling, Other)
  Sender: FDA-Public Use
  Company Number: None

PATIENT
  Age: 55 Year
  Sex: Female
  Weight: 55.8 kg

DRUGS (6)
  1. MAGNESIUM CITRATE [Suspect]
     Active Substance: MAGNESIUM CITRATE
     Indication: Constipation
     Dosage: OTHER QUANTITY : 10 OUNCE(S)?FREQUENCY : DAILY;?
     Route: 048
     Dates: start: 20220901, end: 20220902
  2. VITAMIN E [Concomitant]
     Active Substance: .ALPHA.-TOCOPHEROL
  3. C [Concomitant]
  4. BORON [Concomitant]
     Active Substance: BORON
  5. IRON [Concomitant]
     Active Substance: IRON
  6. HERBALS [Concomitant]
     Active Substance: HERBALS

REACTIONS (7)
  - Vomiting [None]
  - Nausea [None]
  - Liver disorder [None]
  - Back pain [None]
  - Headache [None]
  - Oesophageal varices haemorrhage [None]
  - Haemoglobin decreased [None]

NARRATIVE: CASE EVENT DATE: 20220901
